FAERS Safety Report 9570102 (Version 2)
Quarter: 2013Q3

REPORT INFORMATION
  Report Type: Spontaneous
  Country: US (occurrence: US)
  Receive Date: 20130930
  Receipt Date: 20130930
  Transmission Date: 20140515
  Serious: No
  Sender: FDA-Public Use
  Company Number: US-AMGEN-USASP2013051143

PATIENT
  Age: 56 Year
  Sex: Female
  Weight: 63.04 kg

DRUGS (3)
  1. ENBREL [Suspect]
     Indication: RHEUMATOID ARTHRITIS
     Dosage: 50 MG, QWK
     Route: 058
     Dates: start: 20130712
  2. LEFLUNOMIDE [Concomitant]
     Indication: RHEUMATOID ARTHRITIS
     Dosage: 20 MG, QD
     Route: 048
     Dates: start: 20130501
  3. MEDROL                             /00049601/ [Concomitant]
     Dosage: 4 MG, QD
     Route: 048
     Dates: start: 20120512, end: 20130706

REACTIONS (2)
  - Aphthous stomatitis [Recovered/Resolved]
  - Oral herpes [Not Recovered/Not Resolved]
